FAERS Safety Report 21466409 (Version 1)
Quarter: 2022Q4

REPORT INFORMATION
  Report Type: Other
  Country: US (occurrence: None)
  Receive Date: 20221017
  Receipt Date: 20221017
  Transmission Date: 20230112
  Serious: Yes (Other)
  Sender: FDA-Public Use
  Company Number: US-ROCHE-3201387

PATIENT
  Age: 49 Year
  Sex: Male

DRUGS (7)
  1. BEVACIZUMAB [Suspect]
     Active Substance: BEVACIZUMAB
     Indication: Glioblastoma
     Dosage: 9 CYCLES, TWO DOSES PER CYCLE
     Route: 042
  2. TEMOZOLOMIDE [Suspect]
     Active Substance: TEMOZOLOMIDE
     Indication: Glioblastoma
     Dosage: 2 CYCLES RECEIVED, EACH CYLE: DURING DAYS 1-5 EVERY 28 DAYS
     Route: 048
  3. IRINOTECAN [Suspect]
     Active Substance: IRINOTECAN
     Indication: Glioblastoma
     Dosage: TWO INFUSIONS PER CYCLE, 10 CYCLES RECEIVED
     Route: 042
  4. LOMUSTINE [Concomitant]
     Active Substance: LOMUSTINE
     Indication: Chemotherapy
     Dosage: RECEIVED 2
     Route: 065
  5. TOPOTECAN [Concomitant]
     Active Substance: TOPOTECAN HYDROCHLORIDE
     Indication: Chemotherapy
     Dosage: RECEIVED 11
     Route: 065
  6. CYTARABINE [Concomitant]
     Active Substance: CYTARABINE
     Dosage: RECEIVED 2
  7. THIOTEPA [Concomitant]
     Active Substance: THIOTEPA
     Dosage: RECEIVED 8

REACTIONS (1)
  - Myelosuppression [Unknown]
